FAERS Safety Report 8632140 (Version 2)
Quarter: 2012Q4

REPORT INFORMATION
  Report Type: 
  Country: US (occurrence: US)
  Receive Date: 20120625
  Receipt Date: 20121025
  Transmission Date: 20130627
  Serious: Yes (Hospitalization)
  Sender: FDA-Public Use
  Company Number: US-BAYER-2012-061087

PATIENT
  Age: 19 Year
  Sex: Female

DRUGS (5)
  1. YAZ [Suspect]
     Indication: ACNE
     Dosage: UNK
     Dates: start: 200806, end: 200908
  2. YAZ [Suspect]
     Indication: MENSTRUAL CYCLE MANAGEMENT
  3. VITAMIN C [Concomitant]
     Indication: PAIN RELIEF
     Dosage: daily
  4. IBUPROFEN [Concomitant]
  5. MULTIVITAMIN [Concomitant]
     Dosage: daily

REACTIONS (5)
  - Gallbladder injury [None]
  - Pain [None]
  - Fear [None]
  - Injury [None]
  - Pain [None]
